FAERS Safety Report 23258317 (Version 2)
Quarter: 2023Q4

REPORT INFORMATION
  Report Type: Spontaneous
  Country: JP (occurrence: JP)
  Receive Date: 20231204
  Receipt Date: 20231211
  Transmission Date: 20240109
  Serious: Yes (Other)
  Sender: FDA-Public Use
  Company Number: JP-PHATHOM PHARMACEUTICALS INC.-2023PHT00281

PATIENT

DRUGS (1)
  1. VONOPRAZAN FUMARATE [Suspect]
     Active Substance: VONOPRAZAN FUMARATE
     Indication: Product used for unknown indication
     Dosage: UNK
     Route: 048
     Dates: start: 201705

REACTIONS (5)
  - Gastric mucosal hypertrophy [Unknown]
  - Renal failure [Unknown]
  - Drug level increased [Unknown]
  - Gastric pH increased [Unknown]
  - Hypergastrinaemia [Unknown]

NARRATIVE: CASE EVENT DATE: 20201001
